FAERS Safety Report 5915789-X (Version None)
Quarter: 2008Q4

REPORT INFORMATION
  Report Type: 
  Country: None (occurrence: None)
  Receive Date: 20081010
  Receipt Date: 20081001
  Transmission Date: 20090506
  Serious: Yes (Hospitalization)
  Sender: FDA-Public Use
  Company Number: FR-ASTRAZENECA-2008CG01435

PATIENT
  Age: 18138 Day
  Sex: Female

DRUGS (4)
  1. ARIMIDEX [Suspect]
     Indication: BREAST CANCER FEMALE
     Route: 048
     Dates: start: 20060701, end: 20080401
  2. EPIRUBICIN [Suspect]
     Indication: BREAST CANCER FEMALE
     Route: 042
     Dates: start: 20060301, end: 20060701
  3. CYCLOPHOSPHAMIDE [Suspect]
     Indication: BREAST CANCER FEMALE
     Route: 042
     Dates: start: 20060301, end: 20060701
  4. FLUOROURACIL [Suspect]
     Indication: BREAST CANCER FEMALE
     Route: 042
     Dates: start: 20060301, end: 20060701

REACTIONS (1)
  - ACUTE MYELOID LEUKAEMIA [None]
